FAERS Safety Report 19748468 (Version 4)
Quarter: 2021Q4

REPORT INFORMATION
  Report Type: Report from Study
  Country: US (occurrence: US)
  Receive Date: 20210826
  Receipt Date: 20211001
  Transmission Date: 20220303
  Serious: No
  Sender: FDA-Public Use
  Company Number: NVSC2021US192938

PATIENT
  Sex: Female

DRUGS (1)
  1. PIQRAY [Suspect]
     Active Substance: ALPELISIB
     Indication: Breast cancer
     Dosage: 300 MG, QD (300MG BY MOUTH AT SAME TIME EVERY DAY. TAKE WHOLE W/H2O AND FOOD. TDD 300MG)
     Route: 048
     Dates: start: 202108

REACTIONS (4)
  - Back pain [Unknown]
  - Blood pressure increased [Unknown]
  - Hyperglycaemia [Unknown]
  - Product dose omission issue [Unknown]
